FAERS Safety Report 14528512 (Version 13)
Quarter: 2021Q2

REPORT INFORMATION
  Report Type: Report from Study
  Country: None (occurrence: NL)
  Receive Date: 20180214
  Receipt Date: 20210521
  Transmission Date: 20210716
  Serious: Yes (Hospitalization)
  Sender: FDA-Public Use
  Company Number: NL-ABBVIE-17K-114-2064723-00

PATIENT
  Sex: Male
  Weight: 61 kg

DRUGS (13)
  1. MADOPAR HBS [Concomitant]
     Active Substance: BENSERAZIDE HYDROCHLORIDE\LEVODOPA
     Dosage: 2 AT 11:00 PM
  2. SYMMETREL [Concomitant]
     Active Substance: AMANTADINE HYDROCHLORIDE
     Indication: PARKINSON^S DISEASE
  3. DUODOPA [Suspect]
     Active Substance: CARBIDOPA\LEVODOPA
     Dosage: MD: 3.5, CD: 2.6, ED: 2.5; 16 HOUR ADMINISTRATION
     Route: 050
  4. NEUPRO PATCHES [Suspect]
     Active Substance: ROTIGOTINE
     Indication: PRODUCT USED FOR UNKNOWN INDICATION
     Route: 065
     Dates: end: 20201110
  5. NEUPRO PLASTERS [Concomitant]
     Indication: PRODUCT USED FOR UNKNOWN INDICATION
     Dates: start: 20200929
  6. DUODOPA [Suspect]
     Active Substance: CARBIDOPA\LEVODOPA
     Dosage: CD INCREASED 0.2 ML TO 2.7 ML.  MD DECREASED 1.0 TO 3.5 ML.
     Route: 050
  7. DUODOPA [Suspect]
     Active Substance: CARBIDOPA\LEVODOPA
     Dosage: MD 3.0 ML; 2.8 ML/H; ED 2.5 ML, REMAINS AT 16 HOURS
     Route: 050
  8. MOVICOLON [Concomitant]
     Active Substance: POLYETHYLENE GLYCOL 3350\POTASSIUM CHLORIDE\SODIUM BICARBONATE\SODIUM CHLORIDE
     Indication: ABNORMAL FAECES
  9. DUODOPA [Suspect]
     Active Substance: CARBIDOPA\LEVODOPA
     Indication: PARKINSON^S DISEASE
     Dosage: MD: 4.5, CD: 2.5, ED: 1.0,
     Route: 050
     Dates: start: 20140715
  10. DUODOPA [Suspect]
     Active Substance: CARBIDOPA\LEVODOPA
     Dosage: MD: 3.0, CD: 2.6, ED: 2.5; 16 HOUR ADMINISTRATION MORNING DOSE DECREASED
     Route: 050
  11. MADOPAR DISPERSIBL [Concomitant]
     Active Substance: BENSERAZIDE HYDROCHLORIDE\LEVODOPA
     Indication: PRODUCT USED FOR UNKNOWN INDICATION
     Dosage: 1 AT AROUND 6:00 TO 6:30 AM
     Route: 048
     Dates: start: 20200812
  12. DUODOPA [Suspect]
     Active Substance: CARBIDOPA\LEVODOPA
     Dosage: MD: 3.0 ML CD: 2.6 ML/H ED: 2.5 M
     Route: 050
  13. MADOPAR HBS [Concomitant]
     Active Substance: BENSERAZIDE HYDROCHLORIDE\LEVODOPA
     Indication: PARKINSON^S DISEASE
     Dosage: DURING THE NIGHT, 2, AND AROUND HALF PAST 4 ANOTHER

REACTIONS (39)
  - Speech disorder [Not Recovered/Not Resolved]
  - On and off phenomenon [Recovering/Resolving]
  - Feeling abnormal [Not Recovered/Not Resolved]
  - Weight decreased [Not Recovered/Not Resolved]
  - Muscle spasms [Recovered/Resolved]
  - Dyskinesia [Recovered/Resolved]
  - Impaired quality of life [Unknown]
  - Restlessness [Unknown]
  - Incorrect dose administered [Not Recovered/Not Resolved]
  - Musculoskeletal discomfort [Recovering/Resolving]
  - Stoma site reaction [Recovered/Resolved]
  - Limb discomfort [Not Recovered/Not Resolved]
  - Dystonia [Not Recovered/Not Resolved]
  - Feeling abnormal [Not Recovered/Not Resolved]
  - Amnesia [Not Recovered/Not Resolved]
  - Nervousness [Not Recovered/Not Resolved]
  - Muscle spasms [Not Recovered/Not Resolved]
  - Delusion [Unknown]
  - Stoma site erythema [Recovered/Resolved]
  - Hallucination, visual [Recovering/Resolving]
  - Nocturia [Unknown]
  - Abnormal dreams [Not Recovered/Not Resolved]
  - Tremor [Not Recovered/Not Resolved]
  - Medical device site hypertrophy [Recovered/Resolved]
  - Device issue [Unknown]
  - Hypoaesthesia [Not Recovered/Not Resolved]
  - Muscle rigidity [Not Recovered/Not Resolved]
  - Gait disturbance [Recovering/Resolving]
  - Device difficult to use [Unknown]
  - Medical device site dryness [Unknown]
  - Memory impairment [Not Recovered/Not Resolved]
  - Middle insomnia [Recovered/Resolved]
  - Stoma site inflammation [Recovered/Resolved]
  - Pain [Not Recovered/Not Resolved]
  - Inflammation [Recovered/Resolved]
  - Stoma site extravasation [Not Recovered/Not Resolved]
  - Stoma site haemorrhage [Not Recovered/Not Resolved]
  - Muscle spasms [Not Recovered/Not Resolved]
  - Motor dysfunction [Not Recovered/Not Resolved]

NARRATIVE: CASE EVENT DATE: 2020
